FAERS Safety Report 5506039-7 (Version None)
Quarter: 2007Q4

REPORT INFORMATION
  Report Type: 
  Country: None (occurrence: None)
  Receive Date: 20071102
  Receipt Date: 20071102
  Transmission Date: 20080405
  Serious: Yes (Hospitalization)
  Sender: FDA-Public Use
  Company Number: None

PATIENT
  Sex: Male

DRUGS (2)
  1. AZTREONAM [Suspect]
     Indication: PNEUMONIA
     Dosage: 1 GRAM Q12H IV
     Route: 042
     Dates: start: 20071014, end: 20071027
  2. MOXIFLOXACIN HCL [Suspect]
     Indication: PNEUMONIA
     Dosage: 400 MG ONCE DAILY IV
     Route: 042
     Dates: start: 20071014, end: 20071027

REACTIONS (1)
  - SUPERINFECTION [None]
